FAERS Safety Report 20930015 (Version 1)
Quarter: 2022Q2

REPORT INFORMATION
  Report Type: Report from Study
  Country: DE (occurrence: DE)
  Receive Date: 20220608
  Receipt Date: 20220608
  Transmission Date: 20220720
  Serious: Yes (Hospitalization, Other)
  Sender: FDA-Public Use
  Company Number: DE-PFIZER INC-202200051275

PATIENT
  Age: 7 Day
  Sex: Female

DRUGS (5)
  1. VORICONAZOLE [Suspect]
     Active Substance: VORICONAZOLE
     Indication: Aspergillus infection
     Dosage: MIC 0.125 MG/L
     Route: 065
  2. AMPHOTERICIN B [Suspect]
     Active Substance: AMPHOTERICIN B
     Indication: Aspergillus infection
     Dosage: MIC 0.625 MG/L
     Route: 065
  3. BETAMETHASONE [Suspect]
     Active Substance: BETAMETHASONE
     Indication: Product used for unknown indication
     Dosage: UNK
     Route: 064
  4. CASPOFUNGIN [Suspect]
     Active Substance: CASPOFUNGIN
     Indication: Aspergillus infection
     Dosage: MIC 0.016 MG/L
     Route: 065
  5. HYDROCORTISONE [Suspect]
     Active Substance: HYDROCORTISONE
     Indication: Hypotension
     Dosage: UNK
     Route: 065

REACTIONS (4)
  - Hepatotoxicity [Recovered/Resolved]
  - Drug-induced liver injury [Recovered/Resolved with Sequelae]
  - Scar [Recovered/Resolved with Sequelae]
  - Product use issue [Unknown]
